FAERS Safety Report 18230290 (Version 1)
Quarter: 2020Q3

REPORT INFORMATION
  Report Type: Spontaneous
  Country: ZA (occurrence: ZA)
  Receive Date: 20200904
  Receipt Date: 20200904
  Transmission Date: 20201103
  Serious: Yes (Hospitalization, Other)
  Sender: FDA-Public Use
  Company Number: ZA-LUPIN HEALTHCARE (UK) LIMITED-2020-05112

PATIENT
  Sex: Male

DRUGS (9)
  1. SIMVACOR [Suspect]
     Active Substance: SIMVASTATIN
     Indication: BLOOD CHOLESTEROL ABNORMAL
     Dosage: 10 MILLIGRAM, UNK
     Route: 048
  2. ELTROXIN [Suspect]
     Active Substance: LEVOTHYROXINE
     Indication: HYPOTHYROIDISM
     Dosage: 1000 MICROGRAM, UNK
     Route: 048
  3. GLUCOPHAGE XR [Suspect]
     Active Substance: METFORMIN HYDROCHLORIDE
     Indication: DIABETES MELLITUS
     Dosage: 500 MILLIGRAM, UNK
     Route: 048
  4. HIDRIST [Suspect]
     Active Substance: BETAHISTINE HYDROCHLORIDE
     Indication: VERTIGO
     Dosage: 24 MILLIGRAM, UNK
     Route: 048
  5. BILOCOR CO [Suspect]
     Active Substance: BISOPROLOL FUMARATE\HYDROCHLOROTHIAZIDE
     Indication: HYPERTENSION
     Dosage: 5/6.25MG, UNK
     Route: 048
  6. CYNT [MOXONIDINE] [Suspect]
     Active Substance: MOXONIDINE
     Indication: HYPERTENSION
     Dosage: 0.4 MILLIGRAM, UNK
     Route: 048
  7. DIAGLUCIDE [Suspect]
     Active Substance: GLICLAZIDE
     Indication: DIABETES MELLITUS
     Dosage: 60 MILLIGRAM, UNK
     Route: 048
  8. PLENISH?K [Suspect]
     Active Substance: POTASSIUM CHLORIDE
     Indication: MINERAL SUPPLEMENTATION
     Dosage: 600 MILLIGRAM, UNK
     Route: 048
  9. ECOTRIN [Suspect]
     Active Substance: ASPIRIN
     Indication: PROPHYLAXIS
     Dosage: 81 MILLIGRAM, UNK
     Route: 048

REACTIONS (3)
  - Cerebrovascular accident [Unknown]
  - Fall [Unknown]
  - Rib fracture [Unknown]
